FAERS Safety Report 8154558-X (Version None)
Quarter: 2012Q1

REPORT INFORMATION
  Report Type: 
  Country: None (occurrence: None)
  Receive Date: 20120221
  Receipt Date: 20120210
  Transmission Date: 20120608
  Serious: Yes (Hospitalization)
  Sender: FDA-Public Use
  Company Number: US-ELI_LILLY_AND_COMPANY-US200710003052

PATIENT
  Sex: Female

DRUGS (25)
  1. FORTEO [Suspect]
     Dosage: 20 UG, QD
  2. NEUROTIN                           /00949202/ [Concomitant]
     Indication: NEUROPATHY PERIPHERAL
     Dosage: 300 MG, EACH MORNING
  3. LISINOPRIL [Concomitant]
     Indication: BLOOD PRESSURE
     Dosage: 2.5 MG, UNK
  4. CYMBALTA [Concomitant]
     Indication: PAIN
     Dosage: 30 MG, BID
  5. PROTONIX [Concomitant]
  6. FORTEO [Suspect]
     Dosage: 20 UG, QD
     Route: 065
  7. MIRAPEX [Concomitant]
     Indication: RESTLESS LEGS SYNDROME
     Dosage: 1.25 MG, QD
  8. CALTRATE                           /00944201/ [Concomitant]
     Indication: BONE DISORDER
  9. OPANA [Concomitant]
     Indication: PAIN
     Dosage: 10 MG, BID
  10. FORTEO [Suspect]
     Dosage: 20 UG, QD
  11. NEUROTIN                           /00949202/ [Concomitant]
     Dosage: 600 MG, EACH EVENING
  12. MIRAPEX [Concomitant]
     Dosage: .25 MG, EACH EVENING
  13. FORTEO [Suspect]
     Indication: OSTEOPOROSIS
     Dosage: 20 UG, QD
     Route: 065
     Dates: start: 20071009
  14. CALCIUM CARBONATE [Concomitant]
  15. VYTORIN [Concomitant]
     Indication: BLOOD CHOLESTEROL ABNORMAL
     Dosage: 1 DF, EACH EVENING
  16. PLAVIX [Concomitant]
     Indication: CARDIAC DISORDER
     Dosage: 75 MG, EACH EVENING
  17. RANEXA [Concomitant]
     Indication: CARDIAC DISORDER
     Dosage: 500 MG, UNK
  18. NEXIUM [Concomitant]
  19. PINDOLOL [Concomitant]
     Indication: CARDIAC DISORDER
     Dosage: 2.5 MG, BID
  20. MULTI-VITAMIN [Concomitant]
  21. FORTEO [Suspect]
     Dosage: 20 UG, QD
     Route: 065
  22. FORTEO [Suspect]
     Dosage: 20 UG, QD
  23. LIBRAX [Concomitant]
     Indication: GASTROINTESTINAL DISORDER
     Dosage: UNK UNK, OTHER
  24. ASPIRIN [Concomitant]
     Dosage: UNK UNK, QD
     Route: 065
  25. CLONAZEPAM [Concomitant]
     Dosage: 1 MG, EACH EVENING

REACTIONS (23)
  - BACK DISORDER [None]
  - POSTOPERATIVE ADHESION [None]
  - DYSSTASIA [None]
  - HYPOACUSIS [None]
  - BLOOD PRESSURE ABNORMAL [None]
  - SCIATICA [None]
  - NERVE COMPRESSION [None]
  - FEELING ABNORMAL [None]
  - DIZZINESS [None]
  - DEVICE MISUSE [None]
  - BONE PAIN [None]
  - INTERVERTEBRAL DISC PROTRUSION [None]
  - HEART RATE INCREASED [None]
  - NEUROPATHY PERIPHERAL [None]
  - BLOOD PRESSURE INCREASED [None]
  - CONSTIPATION [None]
  - GAIT DISTURBANCE [None]
  - PAIN IN EXTREMITY [None]
  - BACK PAIN [None]
  - MUSCLE SPASMS [None]
  - DRUG DOSE OMISSION [None]
  - POST LUMBAR PUNCTURE SYNDROME [None]
  - DEPRESSED MOOD [None]
